FAERS Safety Report 4612202-X (Version None)
Quarter: 2005Q1

REPORT INFORMATION
  Report Type: 
  Country: None (occurrence: None)
  Receive Date: 20050316
  Receipt Date: 20050303
  Transmission Date: 20050727
  Serious: Yes (Hospitalization)
  Sender: FDA-Public Use
  Company Number: 200510935BCC

PATIENT
  Age: 7 Year
  Sex: Female
  Weight: 22.6799 kg

DRUGS (1)
  1. RID MOUSSE [Suspect]
     Indication: LICE INFESTATION
     Dosage: TOPICAL
     Route: 061
     Dates: start: 20010101

REACTIONS (2)
  - DRUG INEFFECTIVE [None]
  - PHARYNGITIS STREPTOCOCCAL [None]
